FAERS Safety Report 21983077 (Version 1)
Quarter: 2023Q1

REPORT INFORMATION
  Report Type: Spontaneous
  Country: US (occurrence: US)
  Receive Date: 20230213
  Receipt Date: 20230213
  Transmission Date: 20230417
  Serious: No
  Sender: FDA-Public Use
  Company Number: US-BRISTOL-MYERS SQUIBB COMPANY-2023-020490

PATIENT
  Age: 70 Year
  Sex: Male
  Weight: 82.55 kg

DRUGS (1)
  1. LENALIDOMIDE [Suspect]
     Active Substance: LENALIDOMIDE
     Indication: Plasma cell myeloma
     Dosage: TAKE 1 CAPSULE BY MOUTH EVERY DAY AS DIRECTED FOR 14 DAYS EVERY 21 DAYS (TAKE FOR 2 WEEKS ON, THEN 1
     Route: 048

REACTIONS (2)
  - Bronchitis [Unknown]
  - Off label use [Unknown]
